FAERS Safety Report 8025921 (Version 7)
Quarter: 2024Q1

REPORT INFORMATION
  Report Type: Spontaneous
  Country: US (occurrence: US)
  Receive Date: 20110708
  Receipt Date: 20240329
  Transmission Date: 20240410
  Serious: No
  Sender: FDA-Public Use
  Company Number: US-PFIZER INC-2011147456

PATIENT
  Age: 73 Year
  Sex: Female
  Weight: 108.86 kg

DRUGS (3)
  1. XALATAN [Suspect]
     Active Substance: LATANOPROST
     Indication: Glaucoma
     Dosage: 1 GTT DROPS, QD (1 GTT, 1X/DAY IN BOTH EYES REGIMEN DOSE UNIT: DROP)
     Route: 047
     Dates: start: 1991
  2. XALATAN [Suspect]
     Active Substance: LATANOPROST
     Dosage: 1 GTT DROPS, QD (1 DROP TO BOTH EYES AT BEDTIME)
     Route: 047
  3. XALATAN [Suspect]
     Active Substance: LATANOPROST
     Dosage: 1 GTT DROPS, QD (1 DROP TO BOTH EYES AT BEDTIME)
     Route: 047

REACTIONS (2)
  - Urticaria [Unknown]
  - Incorrect dose administered [Unknown]

NARRATIVE: CASE EVENT DATE: 20240314
